FAERS Safety Report 13958461 (Version 3)
Quarter: 2018Q2

REPORT INFORMATION
  Report Type: Spontaneous
  Country: US (occurrence: US)
  Receive Date: 20170912
  Receipt Date: 20180417
  Transmission Date: 20180711
  Serious: No
  Sender: FDA-Public Use
  Company Number: US-PFIZER INC-2017393231

PATIENT
  Age: 79 Year
  Sex: Female
  Weight: 69 kg

DRUGS (4)
  1. IBRANCE [Suspect]
     Active Substance: PALBOCICLIB
     Dosage: 75 MG, CYCLIC (D1-21 Q28 DAYS)
     Route: 048
     Dates: start: 20170818
  2. IBRANCE [Suspect]
     Active Substance: PALBOCICLIB
     Indication: BREAST CANCER METASTATIC
     Dosage: 100 MG, CYCLIC (D1-21 Q28 DAYS)
     Route: 048
     Dates: start: 20170818
  3. IBRANCE [Suspect]
     Active Substance: PALBOCICLIB
     Dosage: 75 MG, CYCLIC (DAYS 1-21  Q28 DAYS)
     Route: 048
     Dates: start: 20170818
  4. FASLODEX [Suspect]
     Active Substance: FULVESTRANT
     Dosage: UNK

REACTIONS (8)
  - Myalgia [Unknown]
  - Dysgeusia [Unknown]
  - Alopecia [Unknown]
  - Nausea [Unknown]
  - Chills [Unknown]
  - Asthenia [Unknown]
  - Fatigue [Unknown]
  - Food allergy [Unknown]
